FAERS Safety Report 5407593-6 (Version None)
Quarter: 2007Q3

REPORT INFORMATION
  Report Type: 
  Country: None (occurrence: None)
  Receive Date: 20070807
  Receipt Date: 20070806
  Transmission Date: 20080115
  Serious: Yes (Death)
  Sender: FDA-Public Use
  Company Number: BR-BOEHRINGER INGELHEIM PHARMACEUTICALS, INC.-2007-BP-18592BR

PATIENT
  Age: 77 Year
  Sex: Male

DRUGS (3)
  1. SPIRIVA [Suspect]
     Indication: EMPHYSEMA
     Route: 055
     Dates: start: 20050101
  2. DIOVAN [Concomitant]
     Indication: HYPERTENSION
  3. ACETILCISTEINA [Concomitant]

REACTIONS (1)
  - EMPHYSEMA [None]
